FAERS Safety Report 4360910-0 (Version None)
Quarter: 2004Q2

REPORT INFORMATION
  Report Type: 
  Country: None (occurrence: None)
  Receive Date: 20040514
  Receipt Date: 20040427
  Transmission Date: 20050107
  Serious: Yes (Hospitalization)
  Sender: FDA-Public Use
  Company Number: 196815

PATIENT
  Age: 41 Year
  Sex: Female

DRUGS (1)
  1. AVONEX  ^BIOGEN^ [Suspect]
     Indication: MULTIPLE SCLEROSIS
     Dates: start: 20031219

REACTIONS (3)
  - ABASIA [None]
  - CONDITION AGGRAVATED [None]
  - FALL [None]
